FAERS Safety Report 23142183 (Version 2)
Quarter: 2025Q3

REPORT INFORMATION
  Report Type: Report from Study
  Country: EU (occurrence: EU)
  Receive Date: 20231103
  Receipt Date: 20250911
  Transmission Date: 20251021
  Serious: Yes (Death, Other)
  Sender: TAKEDA
  Company Number: EU-JNJFOC-20231071823

PATIENT
  Age: 81 Year
  Sex: Female

DRUGS (3)
  1. BORTEZOMIB [Suspect]
     Active Substance: BORTEZOMIB
     Indication: Plasma cell myeloma
     Dosage: 2 MILLIGRAM, 1/WEEK
  2. TOLODODEKIN ALFA [Suspect]
     Active Substance: TOLODODEKIN ALFA
     Indication: Plasma cell myeloma
  3. PREDNISONE [Suspect]
     Active Substance: PREDNISONE
     Indication: Plasma cell myeloma
     Dosage: 80 MILLIGRAM, 1/WEEK

REACTIONS (6)
  - Plasma cell myeloma [Fatal]
  - Primary amyloidosis [Unknown]
  - COVID-19 [Unknown]
  - Renal impairment [Unknown]
  - Intentional product use issue [Unknown]
  - Off label use [Unknown]
